FAERS Safety Report 9528227 (Version 2)
Quarter: 2013Q3

REPORT INFORMATION
  Report Type: Report from Study
  Country: US (occurrence: US)
  Receive Date: 20130917
  Receipt Date: 20130917
  Transmission Date: 20140515
  Serious: Yes (Other)
  Sender: FDA-Public Use
  Company Number: PHEH2013US017726

PATIENT
  Sex: Female

DRUGS (2)
  1. AFINITOR [Suspect]
     Dosage: 10 MG, QD
     Route: 048
     Dates: start: 20130729, end: 20130904
  2. AROMASIN [Concomitant]

REACTIONS (16)
  - Tumour marker increased [Unknown]
  - Hypertonic bladder [Unknown]
  - International normalised ratio increased [Unknown]
  - Myalgia [Unknown]
  - Arthropod sting [Unknown]
  - Oral pain [Unknown]
  - Arthralgia [Unknown]
  - Cough [Unknown]
  - Generalised oedema [Unknown]
  - Dry mouth [Unknown]
  - White blood cell count decreased [Unknown]
  - Red blood cell count decreased [Unknown]
  - Blood potassium decreased [Unknown]
  - Stomatitis [Unknown]
  - Skin lesion [Unknown]
  - Lymphoedema [Unknown]
